FAERS Safety Report 5808041-4 (Version None)
Quarter: 2008Q3

REPORT INFORMATION
  Report Type: 
  Country: None (occurrence: None)
  Receive Date: 20080711
  Receipt Date: 20080710
  Transmission Date: 20090109
  Serious: Yes (Death)
  Sender: FDA-Public Use
  Company Number: GB-GENENTECH-263380

PATIENT
  Sex: Female
  Weight: 55.2 kg

DRUGS (2)
  1. BEVACIZUMAB [Suspect]
     Indication: BREAST CANCER
     Dosage: 1002 MG, UNK
     Route: 042
     Dates: start: 20071023
  2. DOCETAXEL [Concomitant]
     Indication: BREAST CANCER
     Dosage: 60 MG/M2, UNK
     Dates: start: 20071023

REACTIONS (1)
  - PERITONITIS [None]
